FAERS Safety Report 10262040 (Version 1)
Quarter: 2014Q2

REPORT INFORMATION
  Report Type: Spontaneous
  Country: US (occurrence: None)
  Receive Date: 20140624
  Receipt Date: 20140624
  Transmission Date: 20141212
  Serious: No
  Sender: FDA-Public Use
  Company Number: None

PATIENT
  Age: 26 Year
  Sex: Male
  Weight: 94.5 kg

DRUGS (1)
  1. SULFAMETHOXAZOLE/TRIMETHOPRIM [Suspect]
     Indication: ACNE
     Dosage: 1 DS TAB BID PO
     Route: 048
     Dates: start: 20140311, end: 20140613

REACTIONS (3)
  - Rash [None]
  - Urticaria [None]
  - Pruritus [None]
